FAERS Safety Report 23903874 (Version 2)
Quarter: 2024Q2

REPORT INFORMATION
  Report Type: Spontaneous
  Country: JP (occurrence: JP)
  Receive Date: 20240527
  Receipt Date: 20240605
  Transmission Date: 20240716
  Serious: Yes (Other)
  Sender: FDA-Public Use
  Company Number: JP-GLAXOSMITHKLINE-JP2024JPN063074

PATIENT

DRUGS (5)
  1. LAMICTAL [Interacting]
     Active Substance: LAMOTRIGINE
     Indication: Seizure
     Dosage: 3000 MG, QD
  2. LEVETIRACETAM [Interacting]
     Active Substance: LEVETIRACETAM
     Indication: Seizure
     Dosage: 150 MG, QD
  3. OLANZAPINE [Suspect]
     Active Substance: OLANZAPINE
     Indication: Prophylaxis of nausea and vomiting
     Dosage: UNK
  4. APREPITANT [Interacting]
     Active Substance: APREPITANT
     Dosage: UNK
  5. PALONOSETRON HYDROCHLORIDE [Interacting]
     Active Substance: PALONOSETRON HYDROCHLORIDE
     Dosage: UNK

REACTIONS (7)
  - Small cell lung cancer limited stage [Unknown]
  - Seizure [Unknown]
  - Delirium [Unknown]
  - Paraneoplastic neurological syndrome [Unknown]
  - Altered state of consciousness [Unknown]
  - Inhibitory drug interaction [Unknown]
  - Prescribed overdose [Unknown]
